FAERS Safety Report 10936709 (Version 1)
Quarter: 2015Q1

REPORT INFORMATION
  Report Type: Spontaneous
  Country: US (occurrence: None)
  Receive Date: 20150212
  Receipt Date: 20150212
  Transmission Date: 20150721
  Serious: No
  Sender: FDA-Public Use
  Company Number: TPA2011A08122

PATIENT
  Age: 6 Decade
  Sex: Male

DRUGS (2)
  1. INSULIN (INSULIN) [Concomitant]
     Active Substance: INSULIN NOS
  2. ULORIC [Suspect]
     Active Substance: FEBUXOSTAT
     Route: 048

REACTIONS (2)
  - Gout [None]
  - Myalgia [None]
